FAERS Safety Report 13736461 (Version 1)
Quarter: 2017Q3

REPORT INFORMATION
  Report Type: Spontaneous
  Country: PT (occurrence: PT)
  Receive Date: 20170710
  Receipt Date: 20170710
  Transmission Date: 20171127
  Serious: Yes (Hospitalization)
  Sender: FDA-Public Use
  Company Number: PT-PFIZER INC-2017293639

PATIENT
  Age: 20 Year
  Sex: Male

DRUGS (3)
  1. IFOSFAMIDE. [Suspect]
     Active Substance: IFOSFAMIDE
     Indication: TESTICULAR SEMINOMA (PURE)
     Dosage: UNK
  2. PACLITAXEL HOSPIRA [Suspect]
     Active Substance: PACLITAXEL
     Indication: TESTICULAR SEMINOMA (PURE)
     Dosage: UNK
  3. CISPLATIN. [Suspect]
     Active Substance: CISPLATIN
     Indication: TESTICULAR SEMINOMA (PURE)
     Dosage: UNK

REACTIONS (1)
  - Posterior reversible encephalopathy syndrome [Recovered/Resolved]
